FAERS Safety Report 9467922 (Version 1)
Quarter: 2013Q3

REPORT INFORMATION
  Report Type: Spontaneous
  Country: US (occurrence: US)
  Receive Date: 20130821
  Receipt Date: 20130821
  Transmission Date: 20140515
  Serious: Yes (Other)
  Sender: FDA-Public Use
  Company Number: US-PFIZER INC-2013240694

PATIENT
  Sex: Female

DRUGS (1)
  1. ADVIL [Suspect]
     Indication: NECK PAIN
     Dosage: UNK, 3X/DAY

REACTIONS (2)
  - Haemorrhage [Unknown]
  - Contusion [Unknown]
